FAERS Safety Report 5525841-9 (Version None)
Quarter: 2007Q4

REPORT INFORMATION
  Report Type: 
  Country: None (occurrence: None)
  Receive Date: 20071126
  Receipt Date: 20071114
  Transmission Date: 20080405
  Serious: Yes (Death)
  Sender: FDA-Public Use
  Company Number: DE-PFIZER INC-2007085775

PATIENT
  Sex: Male
  Weight: 120 kg

DRUGS (3)
  1. SUTENT [Suspect]
     Indication: NEOPLASM MALIGNANT
     Dosage: DAILY DOSE:50MG
     Route: 048
  2. SUTENT [Suspect]
     Indication: METASTATIC RENAL CELL CARCINOMA
  3. ZOMETA [Concomitant]
     Route: 042

REACTIONS (2)
  - DYSPNOEA [None]
  - PULMONARY EMBOLISM [None]
